FAERS Safety Report 19921686 (Version 1)
Quarter: 2021Q4

REPORT INFORMATION
  Report Type: Spontaneous
  Country: CN (occurrence: CN)
  Receive Date: 20211006
  Receipt Date: 20211006
  Transmission Date: 20220303
  Serious: Yes (Hospitalization, Other)
  Sender: FDA-Public Use
  Company Number: CN-BAXTER-2021BAX026966

PATIENT
  Age: 38 Year
  Sex: Female
  Weight: 55 kg

DRUGS (12)
  1. CYCLOPHOSPHAMIDE [Suspect]
     Active Substance: CYCLOPHOSPHAMIDE
     Indication: Invasive ductal breast carcinoma
     Dosage: 1 TO 5 CYCLES; CYCLOPHOSPHAMIDE FOR INJECTION + SODIUM CHLORIDE
     Route: 042
  2. CYCLOPHOSPHAMIDE [Suspect]
     Active Substance: CYCLOPHOSPHAMIDE
     Dosage: CYCLOPHOSPHAMIDE FOR INJECTION 0.78G + 0.9% NS 100ML
     Route: 042
     Dates: start: 20201216, end: 20201216
  3. SODIUM CHLORIDE [Suspect]
     Active Substance: SODIUM CHLORIDE
     Indication: Medication dilution
     Dosage: 1 TO 5 CYCLES; DILUTION FOR CYCLOPHOSPHAMIDE
     Route: 042
  4. SODIUM CHLORIDE [Suspect]
     Active Substance: SODIUM CHLORIDE
     Dosage: CYCLOPHOSPHAMIDE FOR INJECTION 0.78G + 0.9% NS 100ML
     Route: 042
     Dates: start: 20201216, end: 20201216
  5. DEXTROSE [Suspect]
     Active Substance: DEXTROSE
     Indication: Medication dilution
     Dosage: 1 TO 5 CYCLES; DILUTION FOR DOCETAXEL
     Route: 042
  6. DEXTROSE [Suspect]
     Active Substance: DEXTROSE
     Dosage: DOCETAXEL INJECTION 120MG + 5% GS 250ML
     Route: 042
     Dates: start: 20201216, end: 20201216
  7. DEXTROSE [Suspect]
     Active Substance: DEXTROSE
     Dosage: 1 TO 5 CYCLES; DILUTION FOR DOXORUBICIN HYDROCHLORIDE
     Route: 042
  8. DEXTROSE [Suspect]
     Active Substance: DEXTROSE
     Dosage: DOXORUBICIN HYDROCHLORIDE FOR INJECTION 78MG + 5% GS 250ML
     Route: 042
     Dates: start: 20201216, end: 20201216
  9. DOCETAXEL [Suspect]
     Active Substance: DOCETAXEL
     Indication: Invasive ductal breast carcinoma
     Dosage: 1 TO 5 CYCLES; DOCETAXEL INJECTION + GLUCOSE
     Route: 042
  10. DOCETAXEL [Suspect]
     Active Substance: DOCETAXEL
     Dosage: DOCETAXEL INJECTION 120MG + 5% GS 250ML; (DISCREPANCY WITH SD (GIVEN 3ML))
     Route: 042
     Dates: start: 20201216, end: 20201216
  11. DOXORUBICIN HYDROCHLORIDE [Suspect]
     Active Substance: DOXORUBICIN HYDROCHLORIDE
     Indication: Invasive ductal breast carcinoma
     Dosage: 1 TO 5 CYCLES; DOXORUBICIN HYDROCHLORIDE FOR INJECTION + GLUCOSE
     Route: 042
  12. DOXORUBICIN HYDROCHLORIDE [Suspect]
     Active Substance: DOXORUBICIN HYDROCHLORIDE
     Dosage: DOXORUBICIN HYDROCHLORIDE FOR INJECTION 78MG + 5% GS 250ML
     Route: 042
     Dates: start: 20201216, end: 20201216

REACTIONS (2)
  - White blood cell count decreased [Recovering/Resolving]
  - Neutrophil count decreased [Recovering/Resolving]

NARRATIVE: CASE EVENT DATE: 20201224
